FAERS Safety Report 8572409-6 (Version None)
Quarter: 2012Q3

REPORT INFORMATION
  Report Type: 
  Country: None (occurrence: None)
  Receive Date: 20120806
  Receipt Date: 20120731
  Transmission Date: 20120928
  Serious: Yes (Hospitalization, Other)
  Sender: FDA-Public Use
  Company Number: US-ABBOTT-12P-163-0940398-00

PATIENT
  Sex: Female
  Weight: 48.124 kg

DRUGS (17)
  1. CANASA [Concomitant]
     Indication: PRODUCT USED FOR UNKNOWN INDICATION
     Dosage: 1000 MG QPM
     Route: 054
  2. KLONOPIN [Suspect]
     Dosage: 2MG AT BEDTIME
  3. PENTASA [Concomitant]
     Indication: CROHN'S DISEASE
  4. KLONOPIN [Suspect]
     Indication: ANXIETY
     Dosage: 2.5MG QPM
  5. VFL #3 [Concomitant]
     Indication: CROHN'S DISEASE
     Dosage: #3 PACKET
  6. SEROQUEL [Suspect]
     Indication: PRODUCT USED FOR UNKNOWN INDICATION
     Dosage: 400MG QPM
  7. DEXILANT [Concomitant]
     Indication: GASTROOESOPHAGEAL REFLUX DISEASE
     Dosage: DAILY
  8. MIRAPEX [Concomitant]
     Indication: PERIODIC LIMB MOVEMENT DISORDER
     Dosage: 0.125, 3 TABLETS EVERY EVENING
  9. VFL #3 [Concomitant]
     Indication: IRRITABLE BOWEL SYNDROME
  10. FLEXERIL [Concomitant]
     Indication: PRODUCT USED FOR UNKNOWN INDICATION
     Dosage: 5-10 MG PRN
  11. HUMIRA [Suspect]
     Indication: CROHN'S DISEASE
     Dates: start: 20090301
  12. HUMIRA [Suspect]
     Dates: start: 20100501
  13. DEPAKOTE ER [Suspect]
     Indication: PRODUCT USED FOR UNKNOWN INDICATION
     Dosage: TWO 500 MG CAPSULES AT BEDTIME
  14. VYVANSE [Concomitant]
     Indication: ATTENTION DEFICIT/HYPERACTIVITY DISORDER
  15. STOOL SOFTENER [Concomitant]
     Indication: PRODUCT USED FOR UNKNOWN INDICATION
  16. KLONOPIN [Suspect]
     Indication: BIPOLAR DISORDER
     Dosage: PRN
  17. SEROQUEL [Suspect]
     Dosage: 300MG AT BEDTIME

REACTIONS (13)
  - PERONEAL NERVE PALSY [None]
  - RECTAL ULCER [None]
  - INCORRECT DOSE ADMINISTERED [None]
  - MALAISE [None]
  - ABDOMINAL PAIN UPPER [None]
  - WRONG TECHNIQUE IN DRUG USAGE PROCESS [None]
  - COMPARTMENT SYNDROME [None]
  - RHABDOMYOLYSIS [None]
  - TENDONITIS [None]
  - MOBILITY DECREASED [None]
  - NAUSEA [None]
  - NERVE COMPRESSION [None]
  - DEHYDRATION [None]
